FAERS Safety Report 4957306-7 (Version None)
Quarter: 2006Q1

REPORT INFORMATION
  Report Type: 
  Country: None (occurrence: None)
  Receive Date: 20060323
  Receipt Date: 20060313
  Transmission Date: 20060701
  Serious: Yes (Other)
  Sender: FDA-Public Use
  Company Number: 2006-03-1048

PATIENT
  Age: 8 Year
  Sex: Male

DRUGS (1)
  1. GREAT GRAPE CHILDREN'S CLARITIN SYRUP (LORATADINE) SYRUP [Suspect]
     Dosage: 2 TSPS ORAL
     Route: 048
     Dates: start: 20060311, end: 20060311

REACTIONS (2)
  - CONVULSION [None]
  - DYSTONIA [None]
